FAERS Safety Report 12450410 (Version 1)
Quarter: 2016Q2

REPORT INFORMATION
  Report Type: Spontaneous
  Country: US (occurrence: None)
  Receive Date: 20160608
  Receipt Date: 20160608
  Transmission Date: 20160815
  Serious: Yes (Other)
  Sender: FDA-Public Use
  Company Number: None

PATIENT
  Age: 44 Year
  Sex: Female
  Weight: 95.26 kg

DRUGS (15)
  1. LYRICA [Concomitant]
     Active Substance: PREGABALIN
  2. BELBUCA [Concomitant]
     Active Substance: BUPRENORPHINE HYDROCHLORIDE
  3. ZOLOFT [Concomitant]
     Active Substance: SERTRALINE HYDROCHLORIDE
  4. VITAMIN B12 [Concomitant]
     Active Substance: CYANOCOBALAMIN
  5. BUTRANS [Suspect]
     Active Substance: BUPRENORPHINE
     Indication: BACK PAIN
     Dosage: 1 PATCH (ES) 7 DAYS APPLIED AS MEDICATED PATCH TO SKIN
     Dates: start: 20160311, end: 20160531
  6. VALTREX [Concomitant]
     Active Substance: VALACYCLOVIR HYDROCHLORIDE
  7. PERCOCET [Concomitant]
     Active Substance: ACETAMINOPHEN\OXYCODONE HYDROCHLORIDE
  8. LAMICTAL [Concomitant]
     Active Substance: LAMOTRIGINE
  9. TRILEPTAL [Concomitant]
     Active Substance: OXCARBAZEPINE
  10. TYLENOL [Concomitant]
     Active Substance: ACETAMINOPHEN
  11. MULTIVITAMIN [Concomitant]
     Active Substance: VITAMINS
  12. BIOTIN [Concomitant]
     Active Substance: BIOTIN
  13. FISH OIL [Concomitant]
     Active Substance: FISH OIL
  14. BUTRANS [Suspect]
     Active Substance: BUPRENORPHINE
     Indication: ARTHRALGIA
     Dosage: 1 PATCH (ES) 7 DAYS APPLIED AS MEDICATED PATCH TO SKIN
     Dates: start: 20160311, end: 20160531
  15. FOLIC ACID. [Concomitant]
     Active Substance: FOLIC ACID

REACTIONS (10)
  - Disturbance in attention [None]
  - Medical device site hypersensitivity [None]
  - Device breakage [None]
  - Application site burn [None]
  - Malaise [None]
  - Nausea [None]
  - Headache [None]
  - Medical device site exfoliation [None]
  - Device leakage [None]
  - Vision blurred [None]

NARRATIVE: CASE EVENT DATE: 20160522
